FAERS Safety Report 4530224-4 (Version None)
Quarter: 2004Q4

REPORT INFORMATION
  Report Type: 
  Country: None (occurrence: None)
  Receive Date: 20041215
  Receipt Date: 20041202
  Transmission Date: 20050328
  Serious: Yes (Other)
  Sender: FDA-Public Use
  Company Number: 2004068315

PATIENT
  Age: 70 Year
  Sex: Female

DRUGS (2)
  1. NEURONTIN [Suspect]
     Indication: NEUROPATHY PERIPHERAL
     Dosage: 1600 MG (800 MG, 2 IN 1 D)
     Dates: end: 19990101
  2. INSULIN [Concomitant]

REACTIONS (2)
  - BLOOD DISORDER [None]
  - DRUG INEFFECTIVE [None]
